FAERS Safety Report 15526124 (Version 1)
Quarter: 2018Q4

REPORT INFORMATION
  Report Type: Spontaneous
  Country: AT (occurrence: AT)
  Receive Date: 20181018
  Receipt Date: 20181018
  Transmission Date: 20190205
  Serious: Yes (Other)
  Sender: FDA-Public Use
  Company Number: AT-AMGEN GMBH-AUTSP2017052122

PATIENT
  Age: 75 Year
  Sex: Female

DRUGS (1)
  1. REPATHA [Suspect]
     Active Substance: EVOLOCUMAB
     Indication: PRODUCT USED FOR UNKNOWN INDICATION
     Dosage: UNK
     Route: 065
     Dates: start: 20170123, end: 20170306

REACTIONS (6)
  - Asthenia [Unknown]
  - Weight decreased [Unknown]
  - Faeces discoloured [Recovering/Resolving]
  - Confusional state [Unknown]
  - Diarrhoea [Recovering/Resolving]
  - Rehabilitation therapy [Unknown]

NARRATIVE: CASE EVENT DATE: 2017
